FAERS Safety Report 8144924-0 (Version None)
Quarter: 2012Q1

REPORT INFORMATION
  Report Type: 
  Country: None (occurrence: None)
  Receive Date: 20120217
  Receipt Date: 20120209
  Transmission Date: 20120608
  Serious: Yes (Hospitalization, Disabling)
  Sender: FDA-Public Use
  Company Number: US-MERCK-1108USA02806

PATIENT
  Age: 55 Year
  Sex: Female
  Weight: 47 kg

DRUGS (7)
  1. FOSAMAX [Suspect]
     Indication: OSTEOPOROSIS
     Route: 048
     Dates: start: 19990701, end: 20010601
  2. FOSAMAX [Suspect]
     Indication: OSTEOPOROSIS PROPHYLAXIS
     Route: 048
  3. ACTONEL [Suspect]
     Indication: OSTEOPENIA
     Route: 048
     Dates: start: 20041101, end: 20081201
  4. FOSAMAX [Suspect]
     Indication: OSTEOPENIA
     Route: 048
     Dates: start: 19990701, end: 20010601
  5. FOSAMAX [Suspect]
     Route: 048
     Dates: start: 20010701, end: 20040801
  6. FOSAMAX [Suspect]
     Route: 048
     Dates: start: 20010701, end: 20040801
  7. FOSAMAX [Suspect]
     Route: 048

REACTIONS (29)
  - LOW TURNOVER OSTEOPATHY [None]
  - INTERVERTEBRAL DISC PROTRUSION [None]
  - PERIARTHRITIS [None]
  - OSTEOARTHRITIS [None]
  - GASTROOESOPHAGEAL REFLUX DISEASE [None]
  - CONTUSION [None]
  - OVARIAN CYST [None]
  - MYOSITIS [None]
  - FEMUR FRACTURE [None]
  - NASOPHARYNGITIS [None]
  - NEUROPATHY PERIPHERAL [None]
  - ABDOMINAL PAIN LOWER [None]
  - OVARIAN ENLARGEMENT [None]
  - TENDON DISORDER [None]
  - ROAD TRAFFIC ACCIDENT [None]
  - PEPTIC ULCER [None]
  - PAIN IN EXTREMITY [None]
  - PYREXIA [None]
  - CARPAL TUNNEL SYNDROME [None]
  - TEMPOROMANDIBULAR JOINT SYNDROME [None]
  - PELVIC PAIN [None]
  - URINARY TRACT INFECTION [None]
  - IMPAIRED HEALING [None]
  - EYE NAEVUS [None]
  - CONSTIPATION [None]
  - BODY HEIGHT DECREASED [None]
  - GASTROINTESTINAL DISORDER [None]
  - FALL [None]
  - EYE PAIN [None]
